FAERS Safety Report 16177161 (Version 1)
Quarter: 2019Q2

REPORT INFORMATION
  Report Type: Spontaneous
  Country: CN (occurrence: CN)
  Receive Date: 20190410
  Receipt Date: 20190410
  Transmission Date: 20190711
  Serious: Yes (Other)
  Sender: FDA-Public Use
  Company Number: CN-ROCHE-2295005

PATIENT
  Age: 50 Year
  Sex: Male

DRUGS (24)
  1. MABTHERA [Suspect]
     Active Substance: RITUXIMAB
     Route: 065
     Dates: start: 20140724
  2. CYCLOPHOSPHAMIDE. [Concomitant]
     Active Substance: CYCLOPHOSPHAMIDE
     Route: 065
     Dates: start: 20140904
  3. PIRARUBICIN [Concomitant]
     Active Substance: PIRARUBICIN
     Route: 065
     Dates: start: 20140815
  4. PREDNISONE. [Concomitant]
     Active Substance: PREDNISONE
     Route: 065
     Dates: start: 20140724
  5. BUSULFEX [Concomitant]
     Active Substance: BUSULFAN
     Dosage: FROM DAY6 TO DAY8
     Route: 065
     Dates: start: 20150220
  6. NIMUSTINE [Concomitant]
     Active Substance: NIMUSTINE
     Dosage: DAY3
     Route: 065
     Dates: start: 20150220
  7. PREDNISONE. [Concomitant]
     Active Substance: PREDNISONE
     Indication: DIFFUSE LARGE B-CELL LYMPHOMA
     Route: 065
     Dates: start: 20140703
  8. CYCLOPHOSPHAMIDE. [Concomitant]
     Active Substance: CYCLOPHOSPHAMIDE
     Indication: DIFFUSE LARGE B-CELL LYMPHOMA
     Route: 065
     Dates: start: 20140703
  9. CYCLOPHOSPHAMIDE. [Concomitant]
     Active Substance: CYCLOPHOSPHAMIDE
     Route: 065
     Dates: start: 20140815
  10. CYTARABINE. [Concomitant]
     Active Substance: CYTARABINE
     Dosage: DAY9 DAY10
     Route: 065
     Dates: start: 20150220
  11. VINCRISTINE [Concomitant]
     Active Substance: VINCRISTINE
     Route: 065
     Dates: start: 20140904
  12. PIRARUBICIN [Concomitant]
     Active Substance: PIRARUBICIN
     Route: 065
     Dates: start: 20140724
  13. PREDNISONE. [Concomitant]
     Active Substance: PREDNISONE
     Route: 065
     Dates: start: 20140815
  14. VINCRISTINE [Concomitant]
     Active Substance: VINCRISTINE
     Route: 065
     Dates: start: 20140724
  15. PIRARUBICIN [Concomitant]
     Active Substance: PIRARUBICIN
     Indication: DIFFUSE LARGE B-CELL LYMPHOMA
     Route: 065
     Dates: start: 20140703
  16. CYCLOPHOSPHAMIDE. [Concomitant]
     Active Substance: CYCLOPHOSPHAMIDE
     Dosage: DAY4 DAY5
     Route: 065
     Dates: start: 20150220
  17. PREDNISONE. [Concomitant]
     Active Substance: PREDNISONE
     Route: 065
     Dates: start: 20140904
  18. VINCRISTINE [Concomitant]
     Active Substance: VINCRISTINE
     Route: 065
     Dates: start: 20140815
  19. MABTHERA [Suspect]
     Active Substance: RITUXIMAB
     Indication: DIFFUSE LARGE B-CELL LYMPHOMA
     Route: 065
     Dates: start: 20140703
  20. MABTHERA [Suspect]
     Active Substance: RITUXIMAB
     Route: 065
     Dates: start: 20140815
  21. MABTHERA [Suspect]
     Active Substance: RITUXIMAB
     Route: 065
     Dates: start: 20140904
  22. CYCLOPHOSPHAMIDE. [Concomitant]
     Active Substance: CYCLOPHOSPHAMIDE
     Route: 065
     Dates: start: 20140724
  23. VINCRISTINE [Concomitant]
     Active Substance: VINCRISTINE
     Indication: DIFFUSE LARGE B-CELL LYMPHOMA
     Route: 065
     Dates: start: 20140703
  24. PIRARUBICIN [Concomitant]
     Active Substance: PIRARUBICIN
     Route: 065
     Dates: start: 20140904

REACTIONS (4)
  - Vomiting [Unknown]
  - Cough [Unknown]
  - Pyrexia [Unknown]
  - Pneumonitis [Unknown]

NARRATIVE: CASE EVENT DATE: 20150325
